FAERS Safety Report 7924988-7 (Version None)
Quarter: 2011Q4

REPORT INFORMATION
  Report Type: 
  Country: None (occurrence: None)
  Receive Date: 20111118
  Receipt Date: 20110330
  Transmission Date: 20120403
  Serious: No
  Sender: FDA-Public Use
  Company Number: US-AMGEN-USASP2011016983

PATIENT
  Age: 56 Year
  Sex: Female

DRUGS (3)
  1. PLAQUENIL [Concomitant]
     Dates: start: 20110202
  2. METHOTREXATE [Concomitant]
     Dates: start: 20110202
  3. ENBREL [Suspect]
     Indication: RHEUMATOID ARTHRITIS
     Dosage: 50 MG, QWK
     Dates: start: 20110222, end: 20110328

REACTIONS (1)
  - CYSTITIS [None]
